FAERS Safety Report 12465879 (Version 2)
Quarter: 2016Q2

REPORT INFORMATION
  Report Type: Report from Study
  Country: US (occurrence: US)
  Receive Date: 20160614
  Receipt Date: 20160616
  Transmission Date: 20160815
  Serious: Yes (Death, Hospitalization)
  Sender: FDA-Public Use
  Company Number: US-ACTELION-A-US2016-137375

PATIENT
  Age: 64 Year
  Sex: Male

DRUGS (13)
  1. SYMBICORT [Concomitant]
     Active Substance: BUDESONIDE\FORMOTEROL FUMARATE DIHYDRATE
  2. NEURONTIN [Concomitant]
     Active Substance: GABAPENTIN
  3. PREDNISONE. [Concomitant]
     Active Substance: PREDNISONE
  4. BUMETANIDE. [Concomitant]
     Active Substance: BUMETANIDE
  5. VITAMIN D [Concomitant]
     Active Substance: CHOLECALCIFEROL
  6. LANTUS [Concomitant]
     Active Substance: INSULIN GLARGINE
  7. OPSUMIT [Suspect]
     Active Substance: MACITENTAN
     Indication: PULMONARY HYPERTENSION
     Dosage: 10 MG, UNK
     Route: 048
     Dates: start: 20160520, end: 20160530
  8. SPIRIVA [Concomitant]
     Active Substance: TIOTROPIUM BROMIDE MONOHYDRATE
  9. ZETIA [Concomitant]
     Active Substance: EZETIMIBE
  10. METOLAZONE. [Concomitant]
     Active Substance: METOLAZONE
  11. ARANESP [Concomitant]
     Active Substance: DARBEPOETIN ALFA
  12. PLAVIX [Concomitant]
     Active Substance: CLOPIDOGREL BISULFATE
  13. COREG [Concomitant]
     Active Substance: CARVEDILOL

REACTIONS (1)
  - Cardiac arrest [Fatal]

NARRATIVE: CASE EVENT DATE: 20160530
